FAERS Safety Report 17846811 (Version 2)
Quarter: 2020Q2

REPORT INFORMATION
  Report Type: Spontaneous
  Country: CN (occurrence: CN)
  Receive Date: 20200601
  Receipt Date: 20200608
  Transmission Date: 20200714
  Serious: Yes (Life-Threatening, Other)
  Sender: FDA-Public Use
  Company Number: CN-GLAXOSMITHKLINE-CN2020APC087631

PATIENT
  Sex: Female

DRUGS (7)
  1. ZINACEF [Suspect]
     Active Substance: CEFUROXIME SODIUM
     Indication: PROPHYLAXIS
     Dosage: 1.5 G
     Route: 041
     Dates: start: 20200520, end: 20200520
  2. ZINACEF [Suspect]
     Active Substance: CEFUROXIME SODIUM
     Indication: INFECTION
  3. KUTAI [Concomitant]
     Indication: INDUCTION OF ANAESTHESIA
     Dosage: 14 MG
     Route: 042
     Dates: start: 20200520, end: 20200520
  4. FORRY [Concomitant]
     Indication: INDUCTION OF ANAESTHESIA
     Dosage: 14 MG
     Route: 042
     Dates: start: 20200520, end: 20200520
  5. SODIUM CHLORIDE 0.9% [Suspect]
     Active Substance: SODIUM CHLORIDE
     Indication: VEHICLE SOLUTION USE
     Dosage: 100 ML
     Route: 042
     Dates: start: 20200520, end: 20200520
  6. LIYUEXI [Concomitant]
     Active Substance: MIDAZOLAM
     Indication: INDUCTION OF ANAESTHESIA
     Dosage: 1.5 MG
     Route: 042
     Dates: start: 20200520, end: 20200520
  7. SUFENTANIL CITRATE INJECTION [Concomitant]
     Active Substance: SUFENTANIL CITRATE
     Indication: INDUCTION OF ANAESTHESIA
     Dosage: 10 UG
     Route: 042
     Dates: start: 20200520, end: 20200520

REACTIONS (4)
  - Blood pressure decreased [Unknown]
  - Drug hypersensitivity [Recovering/Resolving]
  - Blood potassium abnormal [Unknown]
  - Anaphylactic shock [Unknown]

NARRATIVE: CASE EVENT DATE: 20200520
